FAERS Safety Report 12142612 (Version 4)
Quarter: 2019Q1

REPORT INFORMATION
  Report Type: Report from Study
  Country: JP (occurrence: JP)
  Receive Date: 20160303
  Receipt Date: 20190315
  Transmission Date: 20190417
  Serious: Yes (Death, Hospitalization)
  Sender: FDA-Public Use
  Company Number: JP-PFIZER INC-2010113840

PATIENT
  Age: 59 Year
  Sex: Female
  Weight: 44 kg

DRUGS (22)
  1. CELECOX [Suspect]
     Active Substance: CELECOXIB
     Indication: RHEUMATOID ARTHRITIS
     Dosage: 100 MG, 2X/DAY
     Route: 048
     Dates: start: 20100526, end: 20100905
  2. PREDONINE [Suspect]
     Active Substance: PREDNISOLONE
     Dosage: 5 MG, 1X/DAY
     Route: 048
     Dates: start: 20020111, end: 20100905
  3. DEXART [Suspect]
     Active Substance: DEXAMETHASONE SODIUM PHOSPHATE
     Dosage: 200 MG, 1X/DAY
     Route: 042
     Dates: start: 20100911, end: 20100911
  4. PREDNISOLONE. [Suspect]
     Active Substance: PREDNISOLONE
     Dosage: 12 MG, 1X/DAY
     Route: 048
     Dates: start: 20100906, end: 20100923
  5. PREDNISOLONE. [Suspect]
     Active Substance: PREDNISOLONE
     Dosage: 42 MG, 1X/DAY
     Dates: start: 20100924, end: 20100924
  6. OLMESARTAN MEDOXOMIL. [Concomitant]
     Active Substance: OLMESARTAN MEDOXOMIL
     Indication: HYPERTENSION
     Dosage: 10 MG, 1X/DAY
     Route: 048
     Dates: start: 20070529, end: 20100907
  7. VOLTAREN [Suspect]
     Active Substance: DICLOFENAC SODIUM
     Indication: PAIN
     Dosage: 50 MG, 1X/DAY
     Route: 054
     Dates: start: 20100706, end: 20100816
  8. KENTAN [Suspect]
     Active Substance: LOXOPROFEN SODIUM
     Dosage: 60 MG, 2X/DAY
     Route: 048
     Dates: start: 20041228, end: 20100905
  9. MAGNESIUM OXIDE HEAVY [Suspect]
     Active Substance: MAGNESIUM OXIDE
     Dosage: 0.5 G, 2X/DAY
     Route: 048
     Dates: start: 20100917
  10. VOLTAREN [Suspect]
     Active Substance: DICLOFENAC SODIUM
     Dosage: 50 MG, AS NEEDED
     Route: 054
     Dates: start: 20100905
  11. FAMOTIDINE. [Concomitant]
     Active Substance: FAMOTIDINE
     Indication: GASTRIC ULCER
     Dosage: 20 MG, 2X/DAY
     Route: 048
     Dates: start: 20090326
  12. FAMOTIDINE. [Concomitant]
     Active Substance: FAMOTIDINE
     Dosage: 20 MG, 1X/DAY
     Route: 048
     Dates: start: 20100908, end: 20100908
  13. TOFACITINIB CITRATE [Suspect]
     Active Substance: TOFACITINIB CITRATE
     Indication: RHEUMATOID ARTHRITIS
     Dosage: 5 MG, 2X/DAY
     Route: 048
     Dates: start: 20100311, end: 20100818
  14. BENIDIPINE HYDROCHLORIDE [Concomitant]
     Active Substance: BENIDIPINE HYDROCHLORIDE
     Indication: HYPERTENSION
     Dosage: 2 MG, 2X/DAY
     Route: 048
     Dates: start: 20090326, end: 20100907
  15. VOLTAREN [Suspect]
     Active Substance: DICLOFENAC SODIUM
     Dosage: 50 MG, 2X/DAY
     Route: 054
     Dates: start: 20100818, end: 20100904
  16. PREDNISOLONE. [Suspect]
     Active Substance: PREDNISOLONE
     Dosage: 12 MG, 1X/DAY
     Dates: start: 20100925, end: 20100926
  17. AMMONIUM GLYCYRRHIZATE\GLYCINE\RACEMETHIONINE [Suspect]
     Active Substance: AMMONIUM GLYCYRRHIZATE\GLYCINE\RACEMETHIONINE
     Dosage: UNK
     Route: 048
     Dates: start: 20100913
  18. CODEINE PHOSPHATE [Suspect]
     Active Substance: CODEINE PHOSPHATE
     Dosage: 2 G, 1X/DAY
     Route: 048
     Dates: start: 20100915
  19. BAKTAR [Suspect]
     Active Substance: SULFAMETHOXAZOLE\TRIMETHOPRIM
     Dosage: UNK
     Route: 048
     Dates: start: 20100925, end: 20100927
  20. FAMOTIDINE. [Concomitant]
     Active Substance: FAMOTIDINE
     Dosage: 20 MG, 2X/DAY
     Route: 048
     Dates: start: 20100909
  21. ISCOTIN [Concomitant]
     Active Substance: ISONIAZID
     Indication: TUBERCULOSIS
     Dosage: 50 MG, 2X/DAY
     Route: 048
     Dates: start: 20091119, end: 20100905
  22. JUVELA NICOTINATE [Suspect]
     Active Substance: TOCOPHERYL NICOTINATE, D-.ALPHA.
     Dosage: 200 MG, 3X/DAY
     Route: 048
     Dates: start: 20100913

REACTIONS (26)
  - Rheumatoid arthritis [Not Recovered/Not Resolved]
  - Multiple organ dysfunction syndrome [None]
  - Hepatitis acute [None]
  - Bacterial test positive [None]
  - Bacterial infection [None]
  - Liver disorder [Not Recovered/Not Resolved]
  - Fungal infection [None]
  - Neisseria infection [None]
  - Flatulence [None]
  - Candida test positive [None]
  - Pleurisy [Not Recovered/Not Resolved]
  - Malaise [None]
  - Pain [None]
  - Anxiety [None]
  - Hepatic neoplasm [None]
  - Hypoaesthesia [None]
  - Abdominal distension [None]
  - Disseminated intravascular coagulation [Not Recovered/Not Resolved]
  - Oedema peripheral [None]
  - Tremor [None]
  - Hot flush [None]
  - Streptococcal infection [None]
  - Gastric disorder [None]
  - Thrombotic thrombocytopenic purpura [Fatal]
  - Interstitial lung disease [Not Recovered/Not Resolved]
  - Body temperature decreased [None]

NARRATIVE: CASE EVENT DATE: 20100808
